FAERS Safety Report 9120573 (Version 3)
Quarter: 2013Q2

REPORT INFORMATION
  Report Type: Report from Study
  Country: JP (occurrence: JP)
  Receive Date: 20130226
  Receipt Date: 20130410
  Transmission Date: 20140414
  Serious: Yes (Death, Life-Threatening, Hospitalization)
  Sender: FDA-Public Use
  Company Number: JP-GILEAD-2013-0070517

PATIENT
  Age: 40 Year
  Sex: Female

DRUGS (22)
  1. AMBRISENTAN [Suspect]
     Indication: PULMONARY ARTERIAL HYPERTENSION
     Dosage: `2.5 MG, QD
     Route: 048
     Dates: start: 20110114, end: 20110123
  2. AMBRISENTAN [Suspect]
     Dosage: 2.5 MG, BID
     Route: 048
     Dates: start: 20110124, end: 20110213
  3. AMBRISENTAN [Suspect]
     Dosage: 2.5 MG, TID
     Route: 048
     Dates: start: 20110214, end: 20110220
  4. AMBRISENTAN [Suspect]
     Dosage: 2.5 MG, QID
     Route: 048
     Dates: start: 20110221, end: 20110718
  5. FLOLAN [Concomitant]
     Indication: PULMONARY ARTERIAL HYPERTENSION
     Dosage: UNK
     Route: 042
     Dates: end: 20110307
  6. FLOLAN [Concomitant]
     Indication: PULMONARY ARTERIAL HYPERTENSION
     Dosage: UNK
     Route: 042
     Dates: start: 20110308, end: 20110508
  7. FLOLAN [Concomitant]
     Dosage: UNK
     Route: 042
     Dates: start: 20110509, end: 20110718
  8. ADCIRCA [Concomitant]
     Indication: PULMONARY ARTERIAL HYPERTENSION
     Dosage: UNK
     Route: 048
     Dates: end: 20110718
  9. MIDAZOLAM [Concomitant]
     Indication: SEDATION
     Dosage: UNK
     Dates: start: 20110706, end: 20110718
  10. LEPETAN [Concomitant]
     Indication: SEDATION
     Dosage: UNK
     Dates: start: 20110706, end: 20110718
  11. PICILLIBACTA [Concomitant]
     Indication: INFECTION PROPHYLAXIS
     Dosage: UNK
     Route: 042
     Dates: start: 20110707, end: 20110709
  12. DOBUTAMINE [Concomitant]
     Indication: PRODUCT USED FOR UNKNOWN INDICATION
     Dosage: UNK
     Route: 042
     Dates: end: 20110718
  13. DOPAMINE [Concomitant]
     Indication: PRODUCT USED FOR UNKNOWN INDICATION
     Dosage: UNK
     Route: 042
     Dates: end: 20110718
  14. SPIRONOLACTONE [Concomitant]
     Indication: PRODUCT USED FOR UNKNOWN INDICATION
     Dosage: UNK
     Route: 048
     Dates: end: 20110718
  15. GASMOTIN [Concomitant]
     Indication: GASTRITIS PROPHYLAXIS
     Dosage: UNK
     Route: 048
     Dates: end: 20110706
  16. POTASSIUM GLUCONATE [Concomitant]
     Indication: PRODUCT USED FOR UNKNOWN INDICATION
     Dosage: UNK
     Route: 048
     Dates: end: 20110706
  17. LAC-B [Concomitant]
     Indication: PRODUCT USED FOR UNKNOWN INDICATION
     Route: 048
  18. LAC-B [Concomitant]
     Dosage: UNK
     Route: 048
     Dates: end: 20110706
  19. FUROSEMIDE [Concomitant]
     Indication: PRODUCT USED FOR UNKNOWN INDICATION
     Dosage: UNK
     Route: 048
     Dates: start: 20110127, end: 20110718
  20. FERROMIA /00023516/ [Concomitant]
     Indication: PRODUCT USED FOR UNKNOWN INDICATION
     Dosage: UNK
     Route: 048
     Dates: end: 20110216
  21. FLUITRAN [Concomitant]
     Indication: PRODUCT USED FOR UNKNOWN INDICATION
     Dosage: UNK
     Route: 048
     Dates: start: 20110214, end: 20110718
  22. LUPRAC [Concomitant]
     Indication: PRODUCT USED FOR UNKNOWN INDICATION
     Dosage: UNK
     Route: 048
     Dates: start: 20110312, end: 20110718

REACTIONS (9)
  - Pulmonary alveolar haemorrhage [Fatal]
  - Pulmonary alveolar haemorrhage [Fatal]
  - Pulmonary arterial hypertension [Fatal]
  - Acute respiratory failure [Fatal]
  - Low cardiac output syndrome [Fatal]
  - Haemorrhagic anaemia [Fatal]
  - Pneumonia [Not Recovered/Not Resolved]
  - Renal failure chronic [Fatal]
  - Nephrogenic anaemia [Not Recovered/Not Resolved]
